FAERS Safety Report 6474743-2 (Version None)
Quarter: 2009Q4

REPORT INFORMATION
  Report Type: 
  Country: None (occurrence: None)
  Receive Date: 20091204
  Receipt Date: 20091201
  Transmission Date: 20100525
  Serious: Yes (Death, Hospitalization)
  Sender: FDA-Public Use
  Company Number: D0063027A

PATIENT
  Sex: Female
  Weight: 57 kg

DRUGS (4)
  1. ARIXTRA [Suspect]
     Dosage: 2.5MG PER DAY
     Route: 058
     Dates: start: 20090905, end: 20090926
  2. BLOPRESS [Concomitant]
     Indication: HYPERTENSION
     Dosage: 16MG PER DAY
     Route: 048
  3. TORSEMIDE [Concomitant]
     Dosage: 5MG PER DAY
     Route: 048
  4. ASPIRIN [Concomitant]
     Route: 048

REACTIONS (8)
  - BRAIN HERNIATION [None]
  - CATHETER SITE HAEMORRHAGE [None]
  - CEREBELLAR HAEMORRHAGE [None]
  - COAGULATION TIME PROLONGED [None]
  - HAEMOGLOBIN DECREASED [None]
  - POST PROCEDURAL HAEMORRHAGE [None]
  - PRURITUS [None]
  - SCRATCH [None]
